FAERS Safety Report 8793352 (Version 1)
Quarter: 2012Q4

REPORT INFORMATION
  Report Type: 
  Country: CN (occurrence: CN)
  Receive Date: 20120918
  Receipt Date: 20120918
  Transmission Date: 20130627
  Serious: Yes (Hospitalization, Other)
  Sender: FDA-Public Use
  Company Number: PHHY2012CN080070

PATIENT
  Age: 65 Year
  Sex: Female

DRUGS (2)
  1. TRIAMCINOLONE [Suspect]
     Indication: TENOSYNOVITIS STENOSANS
     Dosage: 1 ml, (six local injections)
  2. LIDOCAINE [Concomitant]
     Dosage: 1 ml, UNK

REACTIONS (3)
  - Tendon necrosis [Recovering/Resolving]
  - Tendon rupture [Recovering/Resolving]
  - Hand deformity [Recovering/Resolving]
